FAERS Safety Report 17680557 (Version 1)
Quarter: 2020Q2

REPORT INFORMATION
  Report Type: Spontaneous
  Country: JP (occurrence: JP)
  Receive Date: 20200417
  Receipt Date: 20200417
  Transmission Date: 20200714
  Serious: Yes (Other)
  Sender: FDA-Public Use
  Company Number: JP-ROCHE-2583177

PATIENT
  Age: 17 Year
  Sex: Male
  Weight: 43 kg

DRUGS (9)
  1. TENORMIN [Suspect]
     Active Substance: ATENOLOL
     Indication: PRODUCT USED FOR UNKNOWN INDICATION
     Route: 065
     Dates: start: 20200208
  2. PROGRAF [Suspect]
     Active Substance: TACROLIMUS
     Indication: PRODUCT USED FOR UNKNOWN INDICATION
     Route: 065
     Dates: start: 20191125, end: 20200106
  3. PROGRAF [Suspect]
     Active Substance: TACROLIMUS
     Route: 065
     Dates: start: 20191124
  4. TENORMIN [Suspect]
     Active Substance: ATENOLOL
     Route: 065
     Dates: start: 20191214, end: 20200104
  5. CYCLOPHOSPHAMIDE. [Suspect]
     Active Substance: CYCLOPHOSPHAMIDE
     Indication: PRODUCT USED FOR UNKNOWN INDICATION
     Route: 065
     Dates: start: 20190308
  6. PREVYMIS [Suspect]
     Active Substance: LETERMOVIR
     Indication: CYTOMEGALOVIRUS INFECTION
     Route: 048
     Dates: start: 20191126
  7. DENOSINE [GANCICLOVIR] [Suspect]
     Active Substance: GANCICLOVIR
     Route: 065
     Dates: start: 20200208, end: 20200304
  8. ETOPOSIDE. [Suspect]
     Active Substance: ETOPOSIDE
     Indication: BONE MARROW CONDITIONING REGIMEN
     Route: 065
     Dates: start: 20190308
  9. DENOSINE [GANCICLOVIR] [Suspect]
     Active Substance: GANCICLOVIR
     Indication: BONE MARROW CONDITIONING REGIMEN
     Route: 065
     Dates: start: 20191214, end: 20200104

REACTIONS (5)
  - Bone marrow failure [Recovered/Resolved]
  - Cytomegalovirus test positive [Recovered/Resolved]
  - Oral disorder [Recovered/Resolved]
  - Product use in unapproved indication [Unknown]
  - Intentional product use issue [Unknown]

NARRATIVE: CASE EVENT DATE: 20191213
